FAERS Safety Report 6582469-X (Version None)
Quarter: 2010Q1

REPORT INFORMATION
  Report Type: 
  Country: None (occurrence: None)
  Receive Date: 20100216
  Receipt Date: 20100205
  Transmission Date: 20100710
  Serious: Yes (Hospitalization)
  Sender: FDA-Public Use
  Company Number: PHHY2010FR07252

PATIENT
  Sex: Female

DRUGS (4)
  1. LAMISIL [Suspect]
     Indication: ONYCHOMYCOSIS
     Dosage: 250 MG, QD
     Route: 048
     Dates: start: 20081019, end: 20091228
  2. CYTEAL [Concomitant]
  3. TELFAST [Concomitant]
  4. ZINNAT [Concomitant]

REACTIONS (6)
  - AGITATION [None]
  - DERMATITIS EXFOLIATIVE [None]
  - DRY SKIN [None]
  - PRURITUS [None]
  - RASH ERYTHEMATOUS [None]
  - RASH PRURITIC [None]
